FAERS Safety Report 5882857-0 (Version None)
Quarter: 2008Q3

REPORT INFORMATION
  Report Type: 
  Country: None (occurrence: None)
  Receive Date: 20080913
  Receipt Date: 20080818
  Transmission Date: 20090109
  Serious: No
  Sender: FDA-Public Use
  Company Number: US-ABBOTT-08P-163-0471536-00

PATIENT
  Sex: Male
  Weight: 70.37 kg

DRUGS (2)
  1. HUMIRA [Suspect]
     Indication: RHEUMATOID ARTHRITIS
     Route: 050
     Dates: start: 20080201
  2. GLUCOSAMINE W/CHONDROITIN SULFATE [Concomitant]
     Indication: RHEUMATOID ARTHRITIS
     Dosage: 2-TWICE DAILYX2WEEKS, THEN 1 TWICE A DAY
     Route: 048
     Dates: start: 20080801

REACTIONS (3)
  - ARTHRALGIA [None]
  - DRUG INEFFECTIVE [None]
  - INJECTION SITE IRRITATION [None]
